FAERS Safety Report 4326415-8 (Version None)
Quarter: 2004Q1

REPORT INFORMATION
  Report Type: 
  Country: None (occurrence: None)
  Receive Date: 20040329
  Receipt Date: 20040329
  Transmission Date: 20041129
  Serious: Yes (Other)
  Sender: FDA-Public Use
  Company Number: None

PATIENT
  Sex: Female
  Weight: 68.0396 kg

DRUGS (6)
  1. LUVOX [Suspect]
     Indication: BIPOLAR DISORDER
     Dosage: 100 MG 3 TIMES ORAL
     Route: 048
     Dates: start: 20030304, end: 20030924
  2. LUVOX [Suspect]
     Indication: DEPRESSION
     Dosage: 100 MG 3 TIMES ORAL
     Route: 048
     Dates: start: 20030304, end: 20030924
  3. LUVOX [Suspect]
     Indication: OBSESSIVE-COMPULSIVE DISORDER
     Dosage: 100 MG 3 TIMES ORAL
     Route: 048
     Dates: start: 20030304, end: 20030924
  4. RISPERDAL [Concomitant]
  5. ZYPREXA [Concomitant]
  6. LAMICTAL [Concomitant]

REACTIONS (5)
  - AGITATION [None]
  - ANGER [None]
  - MANIA [None]
  - PSYCHOTIC DISORDER [None]
  - WEIGHT INCREASED [None]
